FAERS Safety Report 7119080-8 (Version None)
Quarter: 2010Q4

REPORT INFORMATION
  Report Type: 
  Country: None (occurrence: None)
  Receive Date: 20101123
  Receipt Date: 20101112
  Transmission Date: 20110411
  Serious: Yes (Hospitalization)
  Sender: FDA-Public Use
  Company Number: B0684323A

PATIENT
  Age: 74 Year
  Sex: Male

DRUGS (1)
  1. ARIXTRA [Suspect]
     Dosage: 7.5MG PER DAY
     Route: 065

REACTIONS (1)
  - SUBDURAL HAEMATOMA [None]
